FAERS Safety Report 4327943-1 (Version None)
Quarter: 2004Q1

REPORT INFORMATION
  Report Type: 
  Country: None (occurrence: None)
  Receive Date: 20040325
  Receipt Date: 20040310
  Transmission Date: 20041129
  Serious: Yes (Life-Threatening)
  Sender: FDA-Public Use
  Company Number: JPT 2004 0001 FUP

PATIENT
  Age: 77 Year
  Sex: Male

DRUGS (5)
  1. IMAGENIL 350 [Suspect]
     Indication: ANGIOGRAM
     Dosage: 30 ML, IA
     Route: 013
     Dates: start: 20040206
  2. BENIDIPINE HCL [Concomitant]
  3. CILOSTAZOL [Concomitant]
  4. PROPRANOLOL HCL [Concomitant]
  5. BROMAZEPAM [Concomitant]

REACTIONS (8)
  - BLOOD PRESSURE DECREASED [None]
  - CARDIO-RESPIRATORY ARREST [None]
  - DEPRESSED LEVEL OF CONSCIOUSNESS [None]
  - DISCOMFORT [None]
  - FEELING HOT [None]
  - HEART RATE DECREASED [None]
  - LARYNGEAL OEDEMA [None]
  - SWELLING FACE [None]
